FAERS Safety Report 21875075 (Version 1)
Quarter: 2023Q1

REPORT INFORMATION
  Report Type: Spontaneous
  Country: US (occurrence: None)
  Receive Date: 20230117
  Receipt Date: 20230117
  Transmission Date: 20230418
  Serious: Yes (Other)
  Sender: FDA-Public Use
  Company Number: 2023A006908

PATIENT
  Sex: Male

DRUGS (1)
  1. TAGRISSO [Suspect]
     Active Substance: OSIMERTINIB
     Indication: Lung neoplasm malignant
     Route: 048
     Dates: start: 202003

REACTIONS (5)
  - Malignant neoplasm progression [Unknown]
  - Urethral disorder [Unknown]
  - Weight decreased [Unknown]
  - Diarrhoea [Unknown]
  - Rash [Unknown]
